FAERS Safety Report 11390238 (Version 1)
Quarter: 2015Q3

REPORT INFORMATION
  Report Type: Spontaneous
  Country: US (occurrence: None)
  Receive Date: 20150814
  Receipt Date: 20150814
  Transmission Date: 20151125
  Serious: Yes (Disabling)
  Sender: FDA-Public Use
  Company Number: None

PATIENT
  Age: 72 Year
  Sex: Female
  Weight: 68.04 kg

DRUGS (2)
  1. VALIUM [Concomitant]
     Active Substance: DIAZEPAM
  2. QUETIAPINE 100MG [Suspect]
     Active Substance: QUETIAPINE
     Indication: MAJOR DEPRESSION
     Dosage: 1-2 TABS QD ORAL
     Route: 048
     Dates: start: 20141201, end: 20150801

REACTIONS (1)
  - Muscle spasms [None]

NARRATIVE: CASE EVENT DATE: 20150813
